FAERS Safety Report 5859346-2 (Version None)
Quarter: 2008Q3

REPORT INFORMATION
  Report Type: 
  Country: None (occurrence: None)
  Receive Date: 20080825
  Receipt Date: 20080811
  Transmission Date: 20090109
  Serious: Yes (Hospitalization)
  Sender: FDA-Public Use
  Company Number: 100#08#2008-04104

PATIENT
  Age: 67 Year
  Sex: Female

DRUGS (4)
  1. METHOTREXATE [Suspect]
     Indication: DERMATOMYOSITIS
     Dosage: 15 MG; 15 MG/WEEK
     Dates: start: 19990101, end: 20050901
  2. METHOTREXATE [Suspect]
     Indication: DERMATOMYOSITIS
     Dosage: 15 MG; 15 MG/WEEK
     Dates: start: 20050901
  3. PREDNISONE [Concomitant]
  4. HYDROXYCHLOROQUINE SULFATE [Concomitant]

REACTIONS (15)
  - ACCIDENTAL OVERDOSE [None]
  - ANAEMIA [None]
  - ANOREXIA [None]
  - BLISTER [None]
  - BLOOD DISORDER [None]
  - DRUG PRESCRIBING ERROR [None]
  - HEPATIC ENZYME INCREASED [None]
  - LEUKOPENIA [None]
  - MOUTH ULCERATION [None]
  - NAUSEA [None]
  - RASH ERYTHEMATOUS [None]
  - RASH PUSTULAR [None]
  - SKIN DISORDER [None]
  - SKIN TOXICITY [None]
  - THROMBOCYTOPENIA [None]
